FAERS Safety Report 4426567-5 (Version None)
Quarter: 2004Q3

REPORT INFORMATION
  Report Type: 
  Country: None (occurrence: None)
  Receive Date: 20040816
  Receipt Date: 20020726
  Transmission Date: 20050211
  Serious: Yes (Hospitalization)
  Sender: FDA-Public Use
  Company Number: PHHO2002RU05674

PATIENT
  Age: 63 Year
  Sex: Female
  Weight: 65 kg

DRUGS (2)
  1. TEGASEROD VS PLACEBO [Suspect]
     Indication: CONSTIPATION
     Dosage: 6 MG, BID
     Route: 048
     Dates: start: 20020305, end: 20020718
  2. ANTIHYPERTENSIVES [Concomitant]

REACTIONS (9)
  - AMNESIA [None]
  - ATHEROSCLEROSIS [None]
  - CONVULSION [None]
  - DEPRESSION [None]
  - ENCEPHALOPATHY [None]
  - EPILEPSY [None]
  - LEUKOENCEPHALOPATHY [None]
  - MENTAL DISORDER [None]
  - URINARY INCONTINENCE [None]
